FAERS Safety Report 10779120 (Version 1)
Quarter: 2015Q1

REPORT INFORMATION
  Report Type: Spontaneous
  Country: US (occurrence: None)
  Receive Date: 20150206
  Receipt Date: 20150206
  Transmission Date: 20150721
  Serious: No
  Sender: FDA-Public Use
  Company Number: None

PATIENT

DRUGS (2)
  1. AMBIEN [Suspect]
     Active Substance: ZOLPIDEM TARTRATE
  2. PREDNISONE. [Suspect]
     Active Substance: PREDNISONE

REACTIONS (6)
  - Wrong drug administered [None]
  - Confusional state [None]
  - Product commingling [None]
  - Drug dispensing error [None]
  - Somnolence [None]
  - Overdose [None]
